FAERS Safety Report 7162701-4 (Version None)
Quarter: 2010Q4

REPORT INFORMATION
  Report Type: 
  Country: None (occurrence: None)
  Receive Date: 20101215
  Receipt Date: 20091214
  Transmission Date: 20110411
  Serious: Yes (Other)
  Sender: FDA-Public Use
  Company Number: DE-PFIZER INC-2009290815

PATIENT
  Age: 68 Year

DRUGS (1)
  1. AROMASIN [Suspect]
     Indication: BREAST CANCER FEMALE
     Dosage: 25 MG, 1X/DAY
     Route: 048
     Dates: start: 20090101

REACTIONS (4)
  - BONE PAIN [None]
  - CATARACT [None]
  - DIPLOPIA [None]
  - RETINAL DETACHMENT [None]
